FAERS Safety Report 6583359-9 (Version None)
Quarter: 2010Q1

REPORT INFORMATION
  Report Type: 
  Country: None (occurrence: None)
  Receive Date: 20100216
  Receipt Date: 20100208
  Transmission Date: 20100710
  Serious: Yes (Death, Hospitalization)
  Sender: FDA-Public Use
  Company Number: IT-TEVA-223773ISR

PATIENT
  Age: 43 Year
  Sex: Male

DRUGS (16)
  1. NIFEDIPINE [Suspect]
     Indication: HYPERTENSION
     Dates: end: 20071102
  2. DISULFIRAM [Suspect]
     Indication: ALCOHOL ABUSE
  3. AMITRIPTYLINE HCL [Suspect]
     Indication: ALCOHOL ABUSE
  4. LAMIVUDINE + ZIDOVUDINE [Suspect]
     Indication: ANTIRETROVIRAL THERAPY
     Dosage: 150/250MG TWICE DAILY
  5. STAVUDINE [Suspect]
     Indication: ANTIRETROVIRAL THERAPY
     Dosage: 40MG TWICE DAILY
  6. DIDANOSINE [Suspect]
     Indication: ANTIRETROVIRAL THERAPY
  7. DIDANOSINE [Suspect]
  8. TENOFOVIR [Suspect]
  9. LAMIVUDINE [Suspect]
     Indication: ANTIRETROVIRAL THERAPY
  10. EMTRICITABINE AND TENOFOVIR DISOPROXIL FUMARATE [Suspect]
     Indication: ANTIRETROVIRAL THERAPY
     Dosage: 200/300 MG DAILY
  11. FOSAMPRENAVIR [Suspect]
     Indication: ANTIRETROVIRAL THERAPY
  12. RITONAVIR [Suspect]
     Indication: ANTIRETROVIRAL THERAPY
  13. GABAPENTIN [Concomitant]
     Indication: NEUROPATHY PERIPHERAL
  14. VITAMIN B COMPLEX CAP [Concomitant]
     Indication: NEUROPATHY PERIPHERAL
  15. MAGNESIUM [Concomitant]
     Indication: NEUROPATHY PERIPHERAL
  16. LORAZEPAM [Concomitant]
     Indication: INSOMNIA

REACTIONS (1)
  - LACTIC ACIDOSIS [None]
